FAERS Safety Report 6748524-6 (Version None)
Quarter: 2010Q2

REPORT INFORMATION
  Report Type: 
  Country: None (occurrence: None)
  Receive Date: 20100601
  Receipt Date: 20090720
  Transmission Date: 20101027
  Serious: Yes (Death)
  Sender: FDA-Public Use
  Company Number: US-ASTRAZENECA-2008UW09558

PATIENT
  Sex: Male

DRUGS (6)
  1. SEROQUEL [Suspect]
     Route: 048
     Dates: start: 20050310
  2. LOPERAMIDE [Concomitant]
     Dates: start: 20040402
  3. UNIVASC [Concomitant]
     Dates: start: 20040412
  4. LIPITOR [Concomitant]
     Dates: start: 20050818
  5. ATENOLOL [Concomitant]
     Dates: start: 20050728
  6. ZYPREXA [Concomitant]
     Dates: start: 20041117

REACTIONS (1)
  - DEATH [None]
